FAERS Safety Report 5741550-5 (Version None)
Quarter: 2008Q2

REPORT INFORMATION
  Report Type: 
  Country: None (occurrence: None)
  Receive Date: 20080519
  Receipt Date: 20080327
  Transmission Date: 20081010
  Serious: Yes (Other)
  Sender: FDA-Public Use
  Company Number: US-BAYER-200811077BCC

PATIENT
  Age: 54 Year
  Sex: Female
  Weight: 57 kg

DRUGS (5)
  1. PHILLIPS MILK OF MAGNESIA FRESH MINT [Suspect]
     Indication: CONSTIPATION
     Route: 048
     Dates: start: 20080310, end: 20080310
  2. PHILLIPS MILK OF MAGNESIA FRESH MINT [Suspect]
     Route: 048
     Dates: start: 20080311
  3. SEROQUEL [Concomitant]
  4. LITHIUM CARBONATE [Concomitant]
  5. XANAX [Concomitant]

REACTIONS (2)
  - CONSTIPATION [None]
  - HAEMATOCHEZIA [None]
